FAERS Safety Report 24722116 (Version 5)
Quarter: 2025Q1

REPORT INFORMATION
  Report Type: Spontaneous
  Country: US (occurrence: US)
  Receive Date: 20241211
  Receipt Date: 20250304
  Transmission Date: 20250408
  Serious: No
  Sender: PFIZER
  Company Number: US-PFIZER INC-202400317320

PATIENT
  Age: 15 Year
  Sex: Male
  Weight: 61.224 kg

DRUGS (3)
  1. GENOTROPIN [Suspect]
     Active Substance: SOMATROPIN
     Indication: Growth hormone deficiency
     Dosage: 1.6 MG, 1X/DAY (EVERY NIGHT)
     Route: 058
     Dates: start: 202411, end: 202412
  2. ANASTROZOLE [Concomitant]
     Active Substance: ANASTROZOLE
     Indication: Growth hormone deficiency
     Dosage: 1 MG, DAILY
  3. SERTRALINE [Concomitant]
     Active Substance: SERTRALINE HYDROCHLORIDE
     Indication: Anxiety
     Dosage: 100 MG, DAILY

REACTIONS (3)
  - Drug dose omission by device [Recovered/Resolved]
  - Device material issue [Recovered/Resolved]
  - Device physical property issue [Recovered/Resolved]

NARRATIVE: CASE EVENT DATE: 20241101
